FAERS Safety Report 22375045 (Version 1)
Quarter: 2023Q2

REPORT INFORMATION
  Report Type: Spontaneous
  Country: TW (occurrence: TW)
  Receive Date: 20230527
  Receipt Date: 20230527
  Transmission Date: 20230722
  Serious: Yes (Other)
  Sender: FDA-Public Use
  Company Number: TW-002147023-NVSC2023TW116434

PATIENT
  Age: 29 Year
  Sex: Male

DRUGS (3)
  1. NILOTINIB [Suspect]
     Active Substance: NILOTINIB
     Indication: Chronic myeloid leukaemia
     Dosage: 150 MG, QD
     Route: 065
  2. NILOTINIB [Suspect]
     Active Substance: NILOTINIB
     Dosage: 150 MG, QD
     Route: 065
  3. NILOTINIB [Suspect]
     Active Substance: NILOTINIB
     Dosage: 150 MG, QD
     Route: 065

REACTIONS (3)
  - Platelet count decreased [Unknown]
  - Therapy non-responder [Unknown]
  - Off label use [Unknown]
